FAERS Safety Report 20939360 (Version 2)
Quarter: 2022Q2

REPORT INFORMATION
  Report Type: Report from Study
  Country: JP (occurrence: JP)
  Receive Date: 20220609
  Receipt Date: 20220610
  Transmission Date: 20220721
  Serious: Yes (Death)
  Sender: FDA-Public Use
  Company Number: JP-PFIZER INC-202200806275

PATIENT
  Age: 80 Year
  Sex: Male
  Weight: 44.8 kg

DRUGS (1)
  1. VYNDAQEL [Suspect]
     Active Substance: TAFAMIDIS MEGLUMINE
     Indication: Cardiac amyloidosis
     Dosage: UNK
     Route: 048
     Dates: start: 20201117

REACTIONS (1)
  - Death [Fatal]

NARRATIVE: CASE EVENT DATE: 20210325
